FAERS Safety Report 5767754-3 (Version None)
Quarter: 2008Q2

REPORT INFORMATION
  Report Type: 
  Country: None (occurrence: None)
  Receive Date: 20080601
  Receipt Date: 20080307
  Transmission Date: 20081010
  Serious: No
  Sender: FDA-Public Use
  Company Number: US200803002130

PATIENT
  Age: 69 Year
  Sex: Female

DRUGS (6)
  1. BYETTA [Suspect]
     Indication: TYPE 2 DIABETES MELLITUS
     Dosage: 5 UG, 2/D, SUBCUTANEOUS
     Route: 058
     Dates: start: 20070101
  2. PRINIVIL [Concomitant]
  3. COREG [Concomitant]
  4. BENICAR [Concomitant]
  5. GLIPIZIDE [Concomitant]
  6. METFORMIN HCL [Concomitant]

REACTIONS (9)
  - ABDOMINAL DISTENSION [None]
  - BLOOD GLUCOSE FLUCTUATION [None]
  - CHOLELITHIASIS [None]
  - COMPUTERISED TOMOGRAM ABNORMAL [None]
  - CONTUSION [None]
  - FALL [None]
  - HYPERTENSION [None]
  - VISUAL ACUITY REDUCED [None]
  - WEIGHT DECREASED [None]
